FAERS Safety Report 10067421 (Version 1)
Quarter: 2014Q2

REPORT INFORMATION
  Report Type: Spontaneous
  Country: US (occurrence: None)
  Receive Date: 20140408
  Receipt Date: 20140408
  Transmission Date: 20141212
  Serious: Yes (Hospitalization)
  Sender: FDA-Public Use
  Company Number: None

PATIENT
  Age: 84 Year
  Sex: Female
  Weight: 124 kg

DRUGS (17)
  1. PRADAXA [Suspect]
     Indication: ATRIAL FIBRILLATION
     Dosage: ONE TABLET
     Route: 048
  2. PANTOPRAZOLE [Concomitant]
  3. FUROSEMIDE [Concomitant]
  4. DILTIAZEM [Concomitant]
  5. FLUTICASONE-SALMETEROL [Concomitant]
  6. ASPIRIN [Concomitant]
  7. DABIGATRAN [Concomitant]
  8. FLUOXETINE [Concomitant]
  9. PRAVASTATIN [Concomitant]
  10. PREGABALIN [Concomitant]
  11. INSULIN LISPRO [Concomitant]
  12. MICONAZOLE [Concomitant]
  13. CEFTRIAXONE [Concomitant]
  14. AZIITHROMYCIN [Concomitant]
  15. ONDANSETRON [Concomitant]
  16. MILK OF MAG [Concomitant]
  17. DUONEBS [Concomitant]

REACTIONS (4)
  - Cardiac failure acute [None]
  - Treatment noncompliance [None]
  - Melaena [None]
  - Haematochezia [None]
